FAERS Safety Report 15398958 (Version 1)
Quarter: 2018Q3

REPORT INFORMATION
  Report Type: Spontaneous
  Country: US (occurrence: US)
  Receive Date: 20180918
  Receipt Date: 20180918
  Transmission Date: 20181010
  Serious: No
  Sender: FDA-Public Use
  Company Number: US-BRAINTREE LABORATORIES-180216

PATIENT
  Age: 51 Year
  Sex: Female
  Weight: 90.72 kg

DRUGS (1)
  1. SUPREP BOWEL PREP [Suspect]
     Active Substance: MAGNESIUM SULFATE\POTASSIUM SULFATE\SODIUM SULFATE
     Indication: COLONOSCOPY
     Dosage: 1 X 6 OZ. BOTTLE
     Route: 048
     Dates: start: 20180425, end: 20180425

REACTIONS (6)
  - Vomiting [None]
  - Musculoskeletal chest pain [None]
  - Urinary incontinence [None]
  - Abdominal distension [None]
  - Dyspnoea [None]
  - Wrong technique in product usage process [None]

NARRATIVE: CASE EVENT DATE: 20180425
